FAERS Safety Report 8288341-1 (Version None)
Quarter: 2012Q2

REPORT INFORMATION
  Report Type: 
  Country: None (occurrence: None)
  Receive Date: 20120416
  Receipt Date: 20120412
  Transmission Date: 20120825
  Serious: Yes (Hospitalization)
  Sender: FDA-Public Use
  Company Number: US-PFIZER INC-2012092558

PATIENT
  Sex: Male

DRUGS (1)
  1. RAPAMUNE [Suspect]
     Indication: STEM CELL TRANSPLANT
     Dosage: 1 MG, UNK
     Dates: start: 20111220

REACTIONS (1)
  - DYSPNOEA [None]
